FAERS Safety Report 11792832 (Version 1)
Quarter: 2015Q4

REPORT INFORMATION
  Report Type: Spontaneous
  Country: US (occurrence: None)
  Receive Date: 20151130
  Receipt Date: 20151130
  Transmission Date: 20160305
  Serious: Yes (Death)
  Sender: FDA-Public Use
  Company Number: None

PATIENT
  Age: 49 Year
  Sex: Male
  Weight: 120.2 kg

DRUGS (1)
  1. ALDESLEUKIN [Suspect]
     Active Substance: ALDESLEUKIN
     Indication: INTRAOCULAR MELANOMA
     Dosage: 600 KIU/KG; Q 8 HRS; IV
     Route: 042
     Dates: start: 20111128, end: 20111216

REACTIONS (8)
  - Pyrexia [None]
  - Dyspnoea [None]
  - Vision blurred [None]
  - Dyspepsia [None]
  - Nausea [None]
  - Diarrhoea [None]
  - Blindness unilateral [None]
  - Deep vein thrombosis [None]

NARRATIVE: CASE EVENT DATE: 20111223
